FAERS Safety Report 22997955 (Version 4)
Quarter: 2024Q1

REPORT INFORMATION
  Report Type: Spontaneous
  Country: JP (occurrence: JP)
  Receive Date: 20230928
  Receipt Date: 20240313
  Transmission Date: 20240409
  Serious: Yes (Hospitalization, Other)
  Sender: FDA-Public Use
  Company Number: JP-MSD-M2023-39436

PATIENT
  Age: 6 Decade
  Sex: Female

DRUGS (3)
  1. KEYTRUDA [Suspect]
     Active Substance: PEMBROLIZUMAB
     Indication: Triple negative breast cancer
     Dosage: 200 MILLIGRAM, Q3W
     Route: 041
     Dates: start: 202306, end: 202309
  2. CARBOPLATIN [Concomitant]
     Active Substance: CARBOPLATIN
     Indication: Triple negative breast cancer
     Dosage: UNK, ADMINISTERED WEEKLY
     Route: 041
     Dates: start: 202306, end: 202309
  3. PACLITAXEL [Concomitant]
     Active Substance: PACLITAXEL
     Indication: Triple negative breast cancer
     Dosage: UNK, ADMINISTERED WEEKLY
     Route: 041
     Dates: start: 202306, end: 202309

REACTIONS (9)
  - Pulmonary oedema [Recovering/Resolving]
  - Brain oedema [Recovering/Resolving]
  - Hypopituitarism [Recovered/Resolved]
  - Type 1 diabetes mellitus [Recovered/Resolved]
  - Adrenal insufficiency [Recovered/Resolved]
  - Cortisol decreased [Recovering/Resolving]
  - Hyponatraemia [Recovering/Resolving]
  - Blood pressure decreased [Unknown]
  - Pyrexia [Unknown]

NARRATIVE: CASE EVENT DATE: 20230101
